FAERS Safety Report 6418399-3 (Version None)
Quarter: 2009Q4

REPORT INFORMATION
  Report Type: 
  Country: None (occurrence: None)
  Receive Date: 20091021
  Receipt Date: 20090707
  Transmission Date: 20100525
  Serious: No
  Sender: FDA-Public Use
  Company Number: ALL1-2009-01854

PATIENT
  Age: 13 Year
  Sex: Female
  Weight: 61.2 kg

DRUGS (3)
  1. VYVANSE [Suspect]
     Indication: ATTENTION DEFICIT/HYPERACTIVITY DISORDER
     Dosage: 30 MG, 1X/DAY:QD, ORAL : 1X/DAY:QD (1/2 OF A 30MG CAPSULE), ORAL
     Route: 048
     Dates: start: 20090609, end: 20090601
  2. VYVANSE [Suspect]
     Indication: ATTENTION DEFICIT/HYPERACTIVITY DISORDER
     Dosage: 30 MG, 1X/DAY:QD, ORAL : 1X/DAY:QD (1/2 OF A 30MG CAPSULE), ORAL
     Route: 048
     Dates: start: 20090601
  3. PROZAC [Concomitant]

REACTIONS (9)
  - ANGER [None]
  - DRUG PRESCRIBING ERROR [None]
  - EMOTIONAL DISTRESS [None]
  - FEELING ABNORMAL [None]
  - FLAT AFFECT [None]
  - INSOMNIA [None]
  - MYDRIASIS [None]
  - NEGATIVISM [None]
  - OFF LABEL USE [None]
